FAERS Safety Report 5931068-9 (Version None)
Quarter: 2008Q4

REPORT INFORMATION
  Report Type: 
  Country: None (occurrence: None)
  Receive Date: 20081027
  Receipt Date: 20081015
  Transmission Date: 20090506
  Serious: Yes (Other)
  Sender: FDA-Public Use
  Company Number: GR-ROCHE-592167

PATIENT
  Sex: Female

DRUGS (2)
  1. BONIVA [Suspect]
     Indication: OSTEOPOROSIS
     Route: 048
     Dates: start: 20070901
  2. CALCIUM SUPPLEMENT [Concomitant]
     Indication: OSTEOPOROSIS
     Dosage: DOSAGE: EVERY 2 DAY

REACTIONS (9)
  - ABDOMINAL DISTENSION [None]
  - DISCOMFORT [None]
  - DIZZINESS [None]
  - HEAD DISCOMFORT [None]
  - INSOMNIA [None]
  - METABOLIC DISORDER [None]
  - NERVOUS SYSTEM DISORDER [None]
  - THYROID NEOPLASM [None]
  - WEIGHT INCREASED [None]
